FAERS Safety Report 25268126 (Version 1)
Quarter: 2025Q2

REPORT INFORMATION
  Report Type: Spontaneous
  Country: US (occurrence: None)
  Receive Date: 20250503
  Receipt Date: 20250503
  Transmission Date: 20250716
  Serious: Yes (Other)
  Sender: FDA-CTU
  Company Number: None

PATIENT
  Age: 63 Year
  Weight: 103.5 kg

DRUGS (18)
  1. BIMZELX [Suspect]
     Active Substance: BIMEKIZUMAB-BKZX
     Indication: Psoriatic arthropathy
     Route: 058
  2. OMEPRAZOLE [Concomitant]
     Active Substance: OMEPRAZOLE
  3. GAS-X [Concomitant]
     Active Substance: DIMETHICONE
  4. PSEUDOEPHEDRINE [Concomitant]
     Active Substance: PSEUDOEPHEDRINE
  5. MELATONIN [Concomitant]
     Active Substance: MELATONIN
  6. BUPRENORPHINE [Concomitant]
     Active Substance: BUPRENORPHINE
  7. TIZANIDINE [Concomitant]
     Active Substance: TIZANIDINE
  8. AMLODIPINE BESYLATE [Concomitant]
     Active Substance: AMLODIPINE BESYLATE
  9. VALSARTAN [Concomitant]
     Active Substance: VALSARTAN
  10. CHLORTHALIDONE [Concomitant]
     Active Substance: CHLORTHALIDONE
  11. PROPRANOLOL [Concomitant]
     Active Substance: PROPRANOLOL HYDROCHLORIDE
  12. DULOXETINE [Concomitant]
     Active Substance: DULOXETINE
  13. TYLENOL EXTRA STRENGTH [Concomitant]
     Active Substance: ACETAMINOPHEN
  14. SENNA LAXATIVE [Concomitant]
     Active Substance: SENNOSIDES
  15. Mucus Relief Chest guaifenesin [Concomitant]
  16. Super C [Concomitant]
  17. Super B-complex [Concomitant]
  18. B12 [Concomitant]

REACTIONS (8)
  - Fatigue [None]
  - Insomnia [None]
  - Heart rate increased [None]
  - Tachyphrenia [None]
  - Suicidal ideation [None]
  - Mental disorder [None]
  - Self-injurious ideation [None]
  - Self-injurious ideation [None]
